FAERS Safety Report 8830826 (Version 3)
Quarter: 2013Q1

REPORT INFORMATION
  Report Type: Spontaneous
  Country: SE (occurrence: SE)
  Receive Date: 20121009
  Receipt Date: 20130118
  Transmission Date: 20140127
  Serious: Yes (Hospitalization)
  Sender: FDA-Public Use
  Company Number: SE-AMGEN-SWESP2012063377

PATIENT
  Age: 62 Year
  Sex: Male
  Weight: 68 kg

DRUGS (20)
  1. PROLIA [Suspect]
     Indication: OSTEOPOROSIS
     Dosage: UNK
     Route: 058
     Dates: start: 20120509, end: 2012
  2. LANTUS [Concomitant]
  3. IMOVAN [Concomitant]
  4. NITROLINGUAL [Concomitant]
  5. INOLAXOL                           /00561901/ [Concomitant]
  6. CILAXORAL [Concomitant]
  7. MICROLAX                           /00285401/ [Concomitant]
  8. BEHEPAN [Concomitant]
  9. KALCIPOS [Concomitant]
  10. TROMBYL [Concomitant]
  11. SIMVASTATIN [Concomitant]
  12. FOLACIN                            /00024201/ [Concomitant]
  13. MIRTAZAPINE [Concomitant]
  14. DUROFERON [Concomitant]
  15. ETALPHA [Concomitant]
  16. LASIX                              /00032601/ [Concomitant]
  17. ATENOLOL [Concomitant]
  18. ALFUZOSINE BIOGARAN [Concomitant]
  19. LAMICTAL [Concomitant]
  20. TRAMADOL [Concomitant]

REACTIONS (22)
  - Urinary tract infection [Unknown]
  - Dysuria [Unknown]
  - Incontinence [Unknown]
  - Malaise [Unknown]
  - Hyperglycaemia [Unknown]
  - Nausea [Recovered/Resolved]
  - Vertigo [Not Recovered/Not Resolved]
  - Fatigue [Unknown]
  - Asthenia [Unknown]
  - Urinary tract disorder [Recovered/Resolved]
  - Dizziness [Not Recovered/Not Resolved]
  - Vomiting [Recovered/Resolved]
  - Pain [Not Recovered/Not Resolved]
  - Electrolyte imbalance [Unknown]
  - Blood creatinine increased [Unknown]
  - Fall [Unknown]
  - Weight decreased [Unknown]
  - Gait disturbance [Unknown]
  - Anxiety [Unknown]
  - Dysphagia [Unknown]
  - Pallor [Unknown]
  - Blood pressure decreased [Unknown]
